FAERS Safety Report 4276727-1 (Version None)
Quarter: 2004Q1

REPORT INFORMATION
  Report Type: 
  Country: None (occurrence: None)
  Receive Date: 20040120
  Receipt Date: 20040109
  Transmission Date: 20041129
  Serious: Yes (Death, Hospitalization)
  Sender: FDA-Public Use
  Company Number: JP-JNJFOC-20031203241

PATIENT
  Age: 90 Year
  Sex: Female
  Weight: 39 kg

DRUGS (5)
  1. OFLOXACIN [Suspect]
     Indication: OSTEITIS
     Dosage: 200 MG, 1 IN 1 DAY, ORAL
     Route: 048
     Dates: start: 20030520, end: 20031022
  2. MODOPAR (MADOPAR) [Suspect]
     Indication: PARKINSON'S DISEASE
     Dosage: 375 MG, ORAL
     Route: 048
     Dates: start: 20020615, end: 20031023
  3. RIFAMPICIN [Suspect]
     Dosage: 1200 MG, ORAL
     Route: 048
     Dates: start: 20030521, end: 20031023
  4. ATHYMIL (MIANSERIN HYDROCHLORIDE) [Suspect]
     Indication: DEPRESSION
     Dosage: 10 MG, ORAL
     Route: 048
     Dates: start: 20030418, end: 20031023
  5. ZYRTEC [Suspect]
     Indication: PRURITUS
     Dosage: IU, ORAL
     Route: 048
     Dates: start: 20030530, end: 20031022

REACTIONS (13)
  - ANURIA [None]
  - BILIRUBIN CONJUGATED INCREASED [None]
  - BLOOD BILIRUBIN INCREASED [None]
  - BLOOD CREATININE INCREASED [None]
  - CONFUSIONAL STATE [None]
  - COOMBS DIRECT TEST POSITIVE [None]
  - DECUBITUS ULCER [None]
  - DEHYDRATION [None]
  - DYSKINESIA [None]
  - GENERAL PHYSICAL HEALTH DETERIORATION [None]
  - MALNUTRITION [None]
  - PAIN [None]
  - PRURITUS [None]
